FAERS Safety Report 8375870-5 (Version None)
Quarter: 2012Q2

REPORT INFORMATION
  Report Type: 
  Country: None (occurrence: None)
  Receive Date: 20120522
  Receipt Date: 20120514
  Transmission Date: 20120825
  Serious: Yes (Other)
  Sender: FDA-Public Use
  Company Number: JP-VERTEX PHARMACEUTICALS INC.-AE-2012-007242

PATIENT
  Age: 67 Year
  Sex: Female

DRUGS (7)
  1. RIBAVIRIN [Concomitant]
     Route: 048
     Dates: start: 20120330, end: 20120404
  2. TELAVIC (TELAPREVIR) [Suspect]
     Indication: HEPATITIS C
     Route: 048
     Dates: start: 20120323, end: 20120412
  3. PEGINTERFERON ALFA-2B [Concomitant]
     Indication: HEPATITIS C
     Route: 051
     Dates: start: 20120323, end: 20120422
  4. RIBAVIRIN [Concomitant]
     Indication: HEPATITIS C
     Route: 048
     Dates: start: 20120323, end: 20120329
  5. PEGINTERFERON ALFA-2B [Concomitant]
     Route: 051
     Dates: start: 20120507
  6. RIBAVIRIN [Concomitant]
     Route: 048
     Dates: start: 20120507
  7. RIBAVIRIN [Concomitant]
     Route: 048
     Dates: start: 20120405, end: 20120422

REACTIONS (2)
  - DECREASED APPETITE [None]
  - ANAEMIA [None]
